FAERS Safety Report 6579580-6 (Version None)
Quarter: 2010Q1

REPORT INFORMATION
  Report Type: 
  Country: None (occurrence: None)
  Receive Date: 20100212
  Receipt Date: 20100201
  Transmission Date: 20100710
  Serious: Yes (Hospitalization, Other)
  Sender: FDA-Public Use
  Company Number: DE-PFIZER INC-2009300594

PATIENT
  Age: 57 Year
  Sex: Female

DRUGS (8)
  1. ZELDOX [Suspect]
     Dosage: 60 MG IN THE MORNING, 80 MG IN THE EVENING
     Route: 048
  2. ABILIFY [Concomitant]
  3. FLUOXETINE HYDROCHLORIDE [Concomitant]
  4. VITAMINS [Concomitant]
  5. DOMINAL FORTE [Concomitant]
  6. GUTRON [Concomitant]
     Indication: HYPOTENSION
  7. ASTONIN-H [Concomitant]
     Indication: HYPOTENSION
  8. AMITRIPTYLINE HYDROCHLORIDE [Concomitant]

REACTIONS (9)
  - AMNESIA [None]
  - ARRHYTHMIA SUPRAVENTRICULAR [None]
  - CEREBRAL HAEMORRHAGE [None]
  - ELECTROCARDIOGRAM QT PROLONGED [None]
  - FALL [None]
  - LOSS OF CONSCIOUSNESS [None]
  - MUSCLE SPASMS [None]
  - SUPRAVENTRICULAR EXTRASYSTOLES [None]
  - VISUAL IMPAIRMENT [None]
